FAERS Safety Report 26069536 (Version 1)
Quarter: 2025Q4

REPORT INFORMATION
  Report Type: Spontaneous
  Country: EU (occurrence: EU)
  Receive Date: 20251120
  Receipt Date: 20251120
  Transmission Date: 20260117
  Serious: Yes (Other)
  Sender: RANBAXY
  Company Number: EU-SUN PHARMACEUTICAL INDUSTRIES INC-2025RR-535861

PATIENT
  Age: 58 Year
  Sex: Male

DRUGS (1)
  1. CIPROFLOXACIN [Suspect]
     Active Substance: CIPROFLOXACIN
     Indication: Urinary tract infection
     Dosage: UNK
     Route: 065

REACTIONS (2)
  - Malignant catatonia [Recovering/Resolving]
  - Condition aggravated [Recovering/Resolving]
